FAERS Safety Report 10215226 (Version 4)
Quarter: 2014Q2

REPORT INFORMATION
  Report Type: Report from Study
  Country: DE (occurrence: DE)
  Receive Date: 20140603
  Receipt Date: 20140624
  Transmission Date: 20141212
  Serious: Yes (Other)
  Sender: FDA-Public Use
  Company Number: PHHO2014DE007199

PATIENT
  Sex: 0

DRUGS (6)
  1. EVEROLIMUS [Suspect]
     Indication: RENAL TRANSPLANT
     Dosage: 0.75 MG, BID
     Route: 048
     Dates: start: 20140426, end: 20140612
  2. CARVEDILOL [Suspect]
     Dosage: UNK
     Dates: start: 20140428, end: 20140522
  3. SANDIMMUN [Concomitant]
     Indication: RENAL TRANSPLANT
     Dosage: 75 MG, BID
     Dates: start: 20140426
  4. DECORTIN [Concomitant]
     Indication: RENAL TRANSPLANT
     Dosage: 25 MG, QD
     Dates: start: 20140426
  5. PLAVIX [Concomitant]
     Dosage: UNK
     Dates: start: 20140515
  6. ASS [Concomitant]

REACTIONS (3)
  - Pancytopenia [Recovered/Resolved]
  - Bradyarrhythmia [Not Recovered/Not Resolved]
  - Acute myocardial infarction [Recovered/Resolved with Sequelae]
